FAERS Safety Report 10162263 (Version 1)
Quarter: 2014Q2

REPORT INFORMATION
  Report Type: Spontaneous
  Country: US (occurrence: US)
  Receive Date: 20140509
  Receipt Date: 20140509
  Transmission Date: 20141212
  Serious: No
  Sender: FDA-Public Use
  Company Number: US-BAYER-2014-068767

PATIENT
  Age: 69 Year
  Sex: Female
  Weight: 73 kg

DRUGS (6)
  1. ALEVE CAPLET [Suspect]
     Dosage: DF (DOSE AS USED)
     Route: 048
  2. ALEVE CAPLET [Suspect]
     Dosage: UNK, ONCE
     Route: 048
     Dates: start: 20140507
  3. CYMBALTA [Concomitant]
  4. LYRICA [Concomitant]
  5. LEVOTHYROXINE [Concomitant]
  6. TRAMADOL [Concomitant]

REACTIONS (2)
  - Extra dose administered [None]
  - Expired product administered [None]
